FAERS Safety Report 16674631 (Version 1)
Quarter: 2019Q3

REPORT INFORMATION
  Report Type: Spontaneous
  Country: BR (occurrence: BR)
  Receive Date: 20190806
  Receipt Date: 20190806
  Transmission Date: 20191004
  Serious: Yes (Hospitalization, Other)
  Sender: FDA-Public Use
  Company Number: BR-009507513-1908BRA000222

PATIENT
  Age: 47 Year
  Sex: Female

DRUGS (1)
  1. PEMBROLIZUMAB. [Suspect]
     Active Substance: PEMBROLIZUMAB
     Indication: OVARIAN CLEAR CELL CARCINOMA
     Dosage: 2 MILLIGRAM/KILOGRAM, Q3W
     Dates: start: 201710, end: 2018

REACTIONS (3)
  - Immune-mediated adverse reaction [Recovering/Resolving]
  - Pemphigoid [Recovering/Resolving]
  - Product use in unapproved indication [Unknown]

NARRATIVE: CASE EVENT DATE: 2017
